FAERS Safety Report 10648694 (Version 2)
Quarter: 2014Q4

REPORT INFORMATION
  Report Type: Spontaneous
  Country: US (occurrence: US)
  Receive Date: 20141212
  Receipt Date: 20141212
  Transmission Date: 20150529
  Serious: No
  Sender: FDA-Public Use
  Company Number: US-TEVA-427448USA

PATIENT
  Age: 63 Year
  Sex: Female

DRUGS (1)
  1. FLUVASTATIN [Suspect]
     Active Substance: FLUVASTATIN SODIUM
     Indication: HYPERCHOLESTEROLAEMIA
     Dates: start: 20130813, end: 20130814

REACTIONS (3)
  - Burning sensation [Unknown]
  - Product quality issue [Unknown]
  - Pain [Unknown]

NARRATIVE: CASE EVENT DATE: 201308
